FAERS Safety Report 4897875-9 (Version None)
Quarter: 2006Q1

REPORT INFORMATION
  Report Type: 
  Country: None (occurrence: None)
  Receive Date: 20060201
  Receipt Date: 20060130
  Transmission Date: 20060701
  Serious: Yes (Other)
  Sender: FDA-Public Use
  Company Number: JO-GLAXOSMITHKLINE-B0408529A

PATIENT
  Sex: Female

DRUGS (1)
  1. ZINNAT [Suspect]
     Indication: URINARY TRACT INFECTION
     Dosage: 250U UNKNOWN
     Route: 065
     Dates: start: 20060121

REACTIONS (2)
  - ABORTION SPONTANEOUS [None]
  - POLYHYDRAMNIOS [None]
